APPROVED DRUG PRODUCT: VANCOMYCIN HYDROCHLORIDE
Active Ingredient: VANCOMYCIN HYDROCHLORIDE
Strength: EQ 250MG BASE
Dosage Form/Route: CAPSULE;ORAL
Application: A210729 | Product #002 | TE Code: AB
Applicant: ORIENT PHARMA CO LTD
Approved: Apr 29, 2019 | RLD: No | RS: No | Type: RX